FAERS Safety Report 15166812 (Version 1)
Quarter: 2018Q3

REPORT INFORMATION
  Report Type: Spontaneous
  Country: FR (occurrence: FR)
  Receive Date: 20180719
  Receipt Date: 20180719
  Transmission Date: 20181010
  Serious: Yes (Other)
  Sender: FDA-Public Use
  Company Number: PHHY2018FR047507

PATIENT
  Sex: Male

DRUGS (1)
  1. BRIMONIDINE [Suspect]
     Active Substance: BRIMONIDINE TARTRATE
     Indication: EXFOLIATION GLAUCOMA
     Dosage: UNK
     Route: 065

REACTIONS (6)
  - Punctate keratitis [Unknown]
  - Conjunctival hyperaemia [Unknown]
  - Conjunctival follicles [Unknown]
  - Conjunctival disorder [Unknown]
  - Drug hypersensitivity [Unknown]
  - Toxicity to various agents [Unknown]
